FAERS Safety Report 16301252 (Version 1)
Quarter: 2019Q2

REPORT INFORMATION
  Report Type: Spontaneous
  Country: NL (occurrence: NL)
  Receive Date: 20190510
  Receipt Date: 20190510
  Transmission Date: 20190711
  Serious: Yes (Death)
  Sender: FDA-Public Use
  Company Number: NL-IMPAX LABORATORIES, LLC-2019-IPXL-00924

PATIENT

DRUGS (3)
  1. EPIRUBICIN HYDROCHLORIDE. [Suspect]
     Active Substance: EPIRUBICIN HYDROCHLORIDE
     Indication: GASTRIC CANCER
     Dosage: 60MG/M, EVERY 3WK
     Route: 065
  2. CAPECITABINE. [Suspect]
     Active Substance: CAPECITABINE
     Indication: GASTRIC CANCER
     Dosage: 625MG/M, EVERY 3WK
     Route: 065
  3. OXALIPLATIN. [Suspect]
     Active Substance: OXALIPLATIN
     Indication: GASTRIC CANCER
     Dosage: 130MG/M, EVERY 3WK
     Route: 065

REACTIONS (1)
  - Adverse event [Fatal]
